FAERS Safety Report 26195139 (Version 1)
Quarter: 2025Q4

REPORT INFORMATION
  Report Type: Spontaneous
  Country: EU (occurrence: EU)
  Receive Date: 20251224
  Receipt Date: 20251224
  Transmission Date: 20260117
  Serious: Yes (Hospitalization, Disabling)
  Sender: MERCK KGAA
  Company Number: None

PATIENT
  Age: 48 Year
  Sex: Female
  Weight: 70 kg

DRUGS (2)
  1. EUTHYROX [Suspect]
     Active Substance: LEVOTHYROXINE SODIUM
     Indication: Autoimmune thyroiditis
     Dates: start: 19940101
  2. DESOGESTREL\ETHINYL ESTRADIOL [Suspect]
     Active Substance: DESOGESTREL\ETHINYL ESTRADIOL
     Indication: Dysmenorrhoea
     Dosage: LAMUNA 20
     Dates: start: 20101201, end: 20251201

REACTIONS (2)
  - Otosclerosis [Recovered/Resolved with Sequelae]
  - Hypoacusis [Recovering/Resolving]

NARRATIVE: CASE EVENT DATE: 20221201
